FAERS Safety Report 5973222-6 (Version None)
Quarter: 2008Q4

REPORT INFORMATION
  Report Type: 
  Country: None (occurrence: None)
  Receive Date: 20081201
  Receipt Date: 20081120
  Transmission Date: 20090506
  Serious: Yes (Hospitalization)
  Sender: FDA-Public Use
  Company Number: US-JNJCH-2008055489

PATIENT
  Age: 31 Year
  Sex: Male

DRUGS (2)
  1. ASPIRIN [Suspect]
     Indication: SUICIDE ATTEMPT
     Dosage: TEXT:UNSPECIFIED
     Route: 048
  2. BENZODIAZEPINE DERIVATIVES [Suspect]
     Indication: SUICIDE ATTEMPT
     Dosage: TEXT:UNSPECIFIED
     Route: 048

REACTIONS (6)
  - BLOOD PRESSURE INCREASED [None]
  - DRUG LEVEL INCREASED [None]
  - DRUG TOXICITY [None]
  - HEART RATE INCREASED [None]
  - OVERDOSE [None]
  - RESPIRATORY FAILURE [None]
